FAERS Safety Report 6923835-X (Version None)
Quarter: 2010Q3

REPORT INFORMATION
  Report Type: 
  Country: None (occurrence: None)
  Receive Date: 20100813
  Receipt Date: 20090831
  Transmission Date: 20110219
  Serious: No
  Sender: FDA-Public Use
  Company Number: US-BRISTOL-MYERS SQUIBB COMPANY-14760979

PATIENT

DRUGS (3)
  1. REYATAZ [Suspect]
  2. ACETAMINOPHEN [Suspect]
     Indication: TOOTHACHE
  3. ALCOHOL [Suspect]
     Indication: TOOTHACHE

REACTIONS (1)
  - BLOOD BILIRUBIN INCREASED [None]
